FAERS Safety Report 17204946 (Version 2)
Quarter: 2020Q1

REPORT INFORMATION
  Report Type: Spontaneous
  Country: ES (occurrence: ES)
  Receive Date: 20191227
  Receipt Date: 20200215
  Transmission Date: 20200409
  Serious: Yes (Death, Other)
  Sender: FDA-Public Use
  Company Number: ES-AUROBINDO-AUR-APL-2019-105981

PATIENT
  Age: 21 Year
  Sex: Male

DRUGS (6)
  1. CAPECITABINE. [Suspect]
     Active Substance: CAPECITABINE
     Indication: NEUROENDOCRINE CARCINOMA
     Dosage: UNK
     Route: 065
  2. TEMOZOLOMIDE. [Suspect]
     Active Substance: TEMOZOLOMIDE
     Indication: HEPATIC CANCER
  3. CARBOPLATIN;PACLITAXEL [Concomitant]
     Indication: HEPATIC CANCER
     Dosage: UNK
     Route: 065
  4. CAPECITABINE. [Suspect]
     Active Substance: CAPECITABINE
     Indication: HEPATIC CANCER
  5. TEMOZOLOMIDE. [Suspect]
     Active Substance: TEMOZOLOMIDE
     Indication: NEUROENDOCRINE CARCINOMA
     Dosage: UNK
     Route: 065
  6. CARBOPLATIN;PACLITAXEL [Concomitant]
     Indication: NEUROENDOCRINE CARCINOMA

REACTIONS (4)
  - Hepatic cancer [Fatal]
  - Off label use [Unknown]
  - Neuroendocrine carcinoma [Fatal]
  - Thrombocytopenia [Unknown]
